FAERS Safety Report 16600446 (Version 1)
Quarter: 2019Q3

REPORT INFORMATION
  Report Type: Spontaneous
  Country: US (occurrence: US)
  Receive Date: 20190720
  Receipt Date: 20190720
  Transmission Date: 20191004
  Serious: No
  Sender: FDA-Public Use
  Company Number: US-JNJFOC-20190718242

PATIENT
  Age: 1 Year
  Sex: Female
  Weight: 10.44 kg

DRUGS (1)
  1. MOTRIN INFANTS [Suspect]
     Active Substance: IBUPROFEN
     Indication: PYREXIA
     Dosage: 1.875 ML TWICE, THREE HOURS APART
     Route: 048

REACTIONS (1)
  - Extra dose administered [Unknown]
